FAERS Safety Report 5593189-2 (Version None)
Quarter: 2008Q1

REPORT INFORMATION
  Report Type: 
  Country: None (occurrence: None)
  Receive Date: 20080116
  Receipt Date: 20080107
  Transmission Date: 20080703
  Serious: Yes (Hospitalization, Other)
  Sender: FDA-Public Use
  Company Number: US-AMGEN-QUU259587

PATIENT
  Sex: Female

DRUGS (2)
  1. ENBREL [Suspect]
     Indication: RHEUMATOID ARTHRITIS
     Route: 058
     Dates: start: 19980101
  2. IMURAN [Concomitant]
     Route: 048

REACTIONS (19)
  - ALOPECIA [None]
  - COLON CANCER [None]
  - DIZZINESS [None]
  - GAIT DISTURBANCE [None]
  - GASTROENTERITIS VIRAL [None]
  - HUMAN EHRLICHIOSIS [None]
  - HYPOAESTHESIA [None]
  - HYPOTENSION [None]
  - INJECTION SITE BRUISING [None]
  - INJECTION SITE PAIN [None]
  - JOINT ARTHROPLASTY [None]
  - JOINT DISLOCATION [None]
  - JOINT RANGE OF MOTION DECREASED [None]
  - LETHARGY [None]
  - LYME DISEASE [None]
  - OSTEOARTHRITIS [None]
  - PROCEDURAL COMPLICATION [None]
  - PYREXIA [None]
  - THYROID FUNCTION TEST ABNORMAL [None]
